FAERS Safety Report 4913798-0 (Version None)
Quarter: 2006Q1

REPORT INFORMATION
  Report Type: 
  Country: None (occurrence: None)
  Receive Date: 20060216
  Receipt Date: 20060127
  Transmission Date: 20060701
  Serious: Yes (Other)
  Sender: FDA-Public Use
  Company Number: 122970

PATIENT
  Age: 39 Year
  Sex: Male
  Weight: 80 kg

DRUGS (5)
  1. VIANI MITE [Suspect]
     Indication: DYSPNOEA
     Dosage: 550MCG FOUR TIMES PER DAY
     Route: 055
     Dates: start: 20051001, end: 20060111
  2. RETROVIR [Concomitant]
     Indication: HIV INFECTION
     Dosage: 250MG TWICE PER DAY
     Route: 065
  3. VIREAD [Concomitant]
     Indication: HIV INFECTION
     Dosage: 245MG PER DAY
     Route: 065
  4. KALETRA [Concomitant]
     Indication: HIV INFECTION
     Dosage: 3U TWICE PER DAY
     Route: 065
  5. LASIX [Concomitant]
     Dosage: 20MG TWICE PER DAY
     Route: 065

REACTIONS (3)
  - GENERALISED OEDEMA [None]
  - PARAESTHESIA [None]
  - SECONDARY ADRENOCORTICAL INSUFFICIENCY [None]
